FAERS Safety Report 8499435 (Version 3)
Quarter: 2012Q4

REPORT INFORMATION
  Report Type: Spontaneous
  Country: FR (occurrence: None)
  Receive Date: 20120327
  Receipt Date: 20120828
  Transmission Date: 20130627
  Serious: Yes (Other)
  Sender: FDA-Public Use
  Company Number: 2012-0471-SPO

PATIENT
  Age: 66 Year
  Sex: Female
  Weight: 67 kg

DRUGS (4)
  1. ESTRADIOL [Suspect]
     Indication: MENOPAUSE
     Dosage: 1 PUMP, 1 IN 1 D, TRANSDERMAL
     Route: 062
  2. PROGESTERONE [Suspect]
     Indication: MENOPAUSE
     Dosage: 3 IN 1 WK,
  3. CRESTOR [Concomitant]
  4. LEXOMIL (BROMAZEPAM) [Concomitant]

REACTIONS (2)
  - Transient ischaemic attack [None]
  - Carotid arteriosclerosis [None]
